FAERS Safety Report 11312385 (Version 1)
Quarter: 2015Q3

REPORT INFORMATION
  Report Type: Spontaneous
  Country: CA (occurrence: CA)
  Receive Date: 20150727
  Receipt Date: 20150727
  Transmission Date: 20151125
  Serious: Yes (Other)
  Sender: FDA-Public Use
  Company Number: 2015SP002504

PATIENT
  Age: 55 Year
  Sex: Female

DRUGS (6)
  1. FERROUS SULFATE [Concomitant]
     Active Substance: FERROUS SULFATE\FERROUS SULFATE, DRIED
  2. ZOPICLONE [Concomitant]
     Active Substance: ZOPICLONE
  3. ALVESCO [Suspect]
     Active Substance: CICLESONIDE
     Indication: UPPER RESPIRATORY TRACT INFECTION
     Route: 055
     Dates: start: 20141115, end: 20141117
  4. ALVESCO [Suspect]
     Active Substance: CICLESONIDE
     Indication: RESPIRATORY DISORDER
     Route: 055
     Dates: start: 20141115, end: 20141117
  5. ESTRACE [Concomitant]
     Active Substance: ESTRADIOL
  6. ALPRAZOLAM. [Concomitant]
     Active Substance: ALPRAZOLAM

REACTIONS (4)
  - Vomiting [Not Recovered/Not Resolved]
  - Headache [Not Recovered/Not Resolved]
  - Neck pain [Not Recovered/Not Resolved]
  - Concomitant disease aggravated [Not Recovered/Not Resolved]

NARRATIVE: CASE EVENT DATE: 20141117
